FAERS Safety Report 25151065 (Version 1)
Quarter: 2025Q2

REPORT INFORMATION
  Report Type: Spontaneous
  Country: US (occurrence: US)
  Receive Date: 20250402
  Receipt Date: 20250402
  Transmission Date: 20250717
  Serious: No
  Sender: SANOFI AVENTIS
  Company Number: US-SA-2025SA093321

PATIENT
  Age: 35 Year
  Sex: Male

DRUGS (9)
  1. DUPIXENT [Suspect]
     Active Substance: DUPILUMAB
     Indication: Dermatitis atopic
     Dosage: 300MG
     Route: 058
     Dates: start: 202503
  2. VYVANSE [Concomitant]
     Active Substance: LISDEXAMFETAMINE DIMESYLATE
  3. HERBALS\WITHANIA SOMNIFERA ROOT [Concomitant]
     Active Substance: HERBALS\WITHANIA SOMNIFERA ROOT
  4. VITAMIN K [Concomitant]
     Active Substance: PHYTONADIONE
  5. VITAMIN D [Concomitant]
     Active Substance: VITAMIN D NOS
  6. HUMALOG [Concomitant]
     Active Substance: INSULIN LISPRO
  7. ACETYLCYSTEINE [Concomitant]
     Active Substance: ACETYLCYSTEINE
  8. OMEGA 3 [Concomitant]
     Active Substance: CAPSAICIN
  9. INSULIN LISPRO [Concomitant]
     Active Substance: INSULIN LISPRO

REACTIONS (2)
  - Migraine [Recovered/Resolved]
  - Asthenia [Recovered/Resolved]

NARRATIVE: CASE EVENT DATE: 20250301
